FAERS Safety Report 11693174 (Version 1)
Quarter: 2015Q4

REPORT INFORMATION
  Report Type: Spontaneous
  Country: US (occurrence: None)
  Receive Date: 20151102
  Receipt Date: 20151102
  Transmission Date: 20160304
  Serious: No
  Sender: FDA-Public Use
  Company Number: None

PATIENT
  Age: 66 Year

DRUGS (9)
  1. PROVENTIL HFA [Concomitant]
     Active Substance: ALBUTEROL SULFATE
  2. VITAMIN D3 [Concomitant]
     Active Substance: CHOLECALCIFEROL
  3. VALACYCLOVIR [Suspect]
     Active Substance: VALACYCLOVIR HYDROCHLORIDE
     Indication: PROPHYLAXIS
     Dosage: 1 PILL, 1 GRAM, ONCE DAILY, TAKEN BY MOUTH
     Route: 048
     Dates: start: 20151007, end: 20151029
  4. VALACYCLOVIR [Suspect]
     Active Substance: VALACYCLOVIR HYDROCHLORIDE
     Indication: ORAL HERPES
     Dosage: 1 PILL, 1 GRAM, ONCE DAILY, TAKEN BY MOUTH
     Route: 048
     Dates: start: 20151007, end: 20151029
  5. VITAMIN C [Concomitant]
     Active Substance: ASCORBIC ACID
  6. CALCIUM W/ MAGNESIUM SUPPLEMENT [Concomitant]
  7. COQ10 [Concomitant]
     Active Substance: UBIDECARENONE
  8. BABY ASPIRIN [Concomitant]
     Active Substance: ASPIRIN
  9. OMEGA FISH OIL [Concomitant]
     Active Substance: FISH OIL\OMEGA-3 FATTY ACIDS

REACTIONS (2)
  - No therapeutic response [None]
  - Headache [None]

NARRATIVE: CASE EVENT DATE: 20151030
